FAERS Safety Report 4490015-X (Version None)
Quarter: 2004Q4

REPORT INFORMATION
  Report Type: 
  Country: None (occurrence: None)
  Receive Date: 20041028
  Receipt Date: 20041015
  Transmission Date: 20050328
  Serious: Yes (Other)
  Sender: FDA-Public Use
  Company Number: 2004-UK-00622UK

PATIENT
  Age: 33 Year
  Sex: Female

DRUGS (3)
  1. NEVIRAPINE (EU/1/97/055/001) (NEVIRAPINE) (TA) [Suspect]
     Indication: HIV INFECTION
     Dosage: 400 MG (200 MG)
     Dates: start: 20000127
  2. VIDEX [Suspect]
     Indication: HIV INFECTION
     Dosage: 400 MG PO
     Route: 048
     Dates: start: 20000101
  3. ZIDOVUDINE [Suspect]
     Indication: HIV INFECTION
     Dosage: 500 MG (100 MG) PO
     Route: 048
     Dates: start: 20000101

REACTIONS (3)
  - DRUG EXPOSURE DURING PREGNANCY [None]
  - PREGNANCY [None]
  - STILLBIRTH [None]
